FAERS Safety Report 6265914-9 (Version None)
Quarter: 2009Q3

REPORT INFORMATION
  Report Type: 
  Country: None (occurrence: None)
  Receive Date: 20090713
  Receipt Date: 20090630
  Transmission Date: 20100115
  Serious: Yes (Hospitalization, Other)
  Sender: FDA-Public Use
  Company Number: PHHY2008JP33160

PATIENT
  Sex: Male

DRUGS (15)
  1. DIOVAN [Suspect]
     Indication: HYPERTENSION
     Dosage: 80 MG, QD
     Route: 048
     Dates: start: 20071017, end: 20071107
  2. DIOVAN [Suspect]
     Dosage: 160 MG, QD
     Route: 048
     Dates: start: 20071210
  3. BETAXOLOL HYDROCHLORIDE [Suspect]
     Indication: HYPERTENSION
     Dosage: 5 MG
     Route: 048
     Dates: start: 20071101, end: 20071107
  4. NORVASC [Concomitant]
     Indication: HYPERTENSION
     Dosage: 7.5 MG
     Route: 048
     Dates: start: 20071017
  5. NORVASC [Concomitant]
     Dosage: 5 MG
     Route: 048
     Dates: end: 20080827
  6. CILAZAPRIL [Concomitant]
     Indication: HYPERTENSION
     Dosage: 0.5 MG
     Route: 048
     Dates: start: 20071210
  7. AMLODIPINE BESYLATE [Concomitant]
     Indication: HYPERTENSION
     Dosage: 5 MG
     Route: 048
     Dates: start: 20070827
  8. LIPITOR [Concomitant]
     Dosage: 10 MG
     Route: 048
     Dates: start: 20071017
  9. EUGLUCON [Concomitant]
     Dosage: 2.5 MG
     Route: 048
     Dates: start: 20071017, end: 20071107
  10. ACTOS [Concomitant]
     Dosage: 30 MG
     Route: 048
     Dates: start: 20071017
  11. ACTOS [Concomitant]
     Dosage: 15 MG
     Route: 048
  12. STARSIS [Concomitant]
     Dosage: 270 MG
     Route: 048
     Dates: start: 20071017, end: 20071107
  13. ASPIRIN [Concomitant]
     Dosage: 100 MG
     Route: 048
     Dates: start: 20071210
  14. VOGLIBOSE [Concomitant]
     Dosage: 0.9 MG
     Route: 048
     Dates: start: 20071210
  15. NOVOLIN N [Concomitant]
     Dosage: 18 IU
     Route: 058
     Dates: start: 20071210

REACTIONS (4)
  - BLOOD CREATININE INCREASED [None]
  - BLOOD UREA INCREASED [None]
  - CARDIAC FAILURE [None]
  - DIABETIC NEPHROPATHY [None]
